FAERS Safety Report 4987275-5 (Version None)
Quarter: 2006Q2

REPORT INFORMATION
  Report Type: 
  Country: None (occurrence: None)
  Receive Date: 20060501
  Receipt Date: 20051013
  Transmission Date: 20061013
  Serious: Yes (Hospitalization, Other)
  Sender: FDA-Public Use
  Company Number: US-MERCK-0510USA07305

PATIENT
  Age: 58 Year
  Sex: Female
  Weight: 89 kg

DRUGS (10)
  1. NAPROXEN [Concomitant]
     Route: 065
     Dates: start: 20000101, end: 20030101
  2. VIOXX [Suspect]
     Indication: INTERVERTEBRAL DISC PROTRUSION
     Route: 048
     Dates: start: 19990101, end: 20030101
  3. ADVIL [Concomitant]
     Route: 065
  4. ZANAFLEX [Concomitant]
     Indication: MUSCLE RELAXANT THERAPY
     Route: 065
     Dates: start: 20020214, end: 20020317
  5. URION [Concomitant]
     Route: 065
  6. ORPHENADRINE [Concomitant]
     Indication: MUSCLE RELAXANT THERAPY
     Route: 065
     Dates: start: 20020926, end: 20030310
  7. TEQUIN [Concomitant]
     Route: 065
  8. CELESTONE TAB [Concomitant]
     Route: 065
     Dates: start: 20030609, end: 20040101
  9. CELEBREX [Concomitant]
     Route: 065
     Dates: start: 20000101, end: 20030101
  10. BEXTRA [Concomitant]
     Route: 065
     Dates: start: 20020221

REACTIONS (12)
  - ASTHMA [None]
  - BACK PAIN [None]
  - CARDIAC FAILURE CONGESTIVE [None]
  - CONVULSION [None]
  - COUGH [None]
  - HYPERTENSION [None]
  - MYOCARDIAL INFARCTION [None]
  - OSTEOARTHRITIS [None]
  - OVERDOSE [None]
  - PAIN [None]
  - PHARYNGITIS [None]
  - SWELLING [None]
